FAERS Safety Report 24719152 (Version 1)
Quarter: 2024Q4

REPORT INFORMATION
  Report Type: Spontaneous
  Country: JP (occurrence: JP)
  Receive Date: 20241210
  Receipt Date: 20241210
  Transmission Date: 20250115
  Serious: Yes (Death, Hospitalization, Other)
  Sender: BRISTOL-MYERS SQUIBB COMPANY
  Company Number: JP-BRISTOL-MYERS SQUIBB COMPANY-2024-188843

PATIENT
  Age: 72 Year
  Sex: Male

DRUGS (3)
  1. NIVOLUMAB [Suspect]
     Active Substance: NIVOLUMAB
     Indication: Metastatic renal cell carcinoma
     Dosage: COURSES:2
     Route: 042
  2. AVELUMAB [Suspect]
     Active Substance: AVELUMAB
     Indication: Renal cancer recurrent
     Dosage: COURSE:24
     Route: 042
  3. AVELUMAB [Suspect]
     Active Substance: AVELUMAB
     Dosage: COURSE:3
     Route: 042

REACTIONS (3)
  - Immune-mediated myocarditis [Fatal]
  - Immune-mediated hepatitis [Unknown]
  - Immune-mediated myositis [Unknown]
